FAERS Safety Report 8248691-1 (Version None)
Quarter: 2012Q1

REPORT INFORMATION
  Report Type: 
  Country: None (occurrence: None)
  Receive Date: 20120331
  Receipt Date: 20120322
  Transmission Date: 20120608
  Serious: Yes (Hospitalization, Other)
  Sender: FDA-Public Use
  Company Number: PHHY2009AU29659

PATIENT
  Sex: Female

DRUGS (1)
  1. CLOZARIL [Suspect]
     Dosage: 25 MG, UNK
     Dates: start: 20041104, end: 20100219

REACTIONS (7)
  - ABNORMAL BEHAVIOUR [None]
  - PSYCHOTIC DISORDER [None]
  - SCREAMING [None]
  - MENTAL DISORDER [None]
  - THINKING ABNORMAL [None]
  - MALAISE [None]
  - SPEECH DISORDER [None]
